FAERS Safety Report 9026916 (Version 3)
Quarter: 2013Q1

REPORT INFORMATION
  Report Type: Spontaneous
  Country: US (occurrence: US)
  Receive Date: 20130123
  Receipt Date: 20130214
  Transmission Date: 20140127
  Serious: Yes (Other)
  Sender: FDA-Public Use
  Company Number: US-PFIZER INC-2013023788

PATIENT
  Age: 19 Year
  Sex: Female
  Weight: 78 kg

DRUGS (1)
  1. DEPO-PROVERA [Suspect]
     Indication: CONTRACEPTION
     Dosage: UNK
     Dates: start: 1995, end: 20020816

REACTIONS (2)
  - Amenorrhoea [Recovered/Resolved]
  - Weight increased [Recovering/Resolving]
